FAERS Safety Report 6663197-9 (Version None)
Quarter: 2010Q2

REPORT INFORMATION
  Report Type: 
  Country: None (occurrence: None)
  Receive Date: 20100401
  Receipt Date: 20100322
  Transmission Date: 20101027
  Serious: Yes (Life-Threatening, Hospitalization, Other)
  Sender: FDA-Public Use
  Company Number: PHHY2010FR15803

PATIENT
  Age: 16 Year
  Sex: Female
  Weight: 60 kg

DRUGS (2)
  1. LAMISIL [Suspect]
     Indication: ONYCHOMYCOSIS
     Dosage: UNK
  2. LAMICTAL CD [Suspect]
     Indication: EPILEPSY
     Dosage: UNK
     Dates: start: 20090427

REACTIONS (13)
  - ANGINA PECTORIS [None]
  - C-REACTIVE PROTEIN INCREASED [None]
  - CYTOLYTIC HEPATITIS [None]
  - DRUG DISPENSING ERROR [None]
  - ENDOTRACHEAL INTUBATION [None]
  - EPIDERMOLYSIS [None]
  - LYMPHADENOPATHY [None]
  - MALAISE [None]
  - MUCOSAL EROSION [None]
  - PHARYNGITIS [None]
  - PYREXIA [None]
  - RASH PAPULAR [None]
  - TOXIC EPIDERMAL NECROLYSIS [None]
